FAERS Safety Report 9012440 (Version 3)
Quarter: 2013Q1

REPORT INFORMATION
  Report Type: Spontaneous
  Country: JP (occurrence: JP)
  Receive Date: 20130114
  Receipt Date: 20130125
  Transmission Date: 20140127
  Serious: Yes (Other)
  Sender: FDA-Public Use
  Company Number: JP-PFIZER INC-2012258112

PATIENT
  Age: 76 Year
  Sex: Male
  Weight: 54 kg

DRUGS (16)
  1. ZYVOX [Suspect]
     Indication: STAPHYLOCOCCAL INFECTION
     Dosage: 600 MG, 2X/DAY
     Route: 041
     Dates: start: 20120618, end: 20120723
  2. ZYVOX [Suspect]
     Indication: PSOAS ABSCESS
  3. ZYVOX [Suspect]
     Indication: EXTRADURAL ABSCESS
  4. ZYVOX [Suspect]
     Indication: EXTRADURAL NEOPLASM
  5. ZOSYN [Suspect]
     Indication: STAPHYLOCOCCAL INFECTION
     Dosage: UNK
     Route: 041
     Dates: end: 20120617
  6. ZOSYN [Suspect]
     Indication: PYELONEPHRITIS
     Dosage: 4.5 G, 3X/DAY
     Route: 041
     Dates: start: 20120715, end: 20120723
  7. ZOSYN [Suspect]
     Indication: PYREXIA
  8. MUCOSAL-L [Concomitant]
     Dosage: 45 MG/DAY
     Route: 048
     Dates: end: 20120720
  9. ZYLORIC ^FAES^ [Concomitant]
     Dosage: 100 MG/DAY
     Route: 048
     Dates: start: 20120720
  10. LAFUTIDINE [Concomitant]
     Dosage: 10 MG/DAY
     Route: 048
     Dates: start: 20120720
  11. LENDORMIN [Concomitant]
     Dosage: 0.25 MG/DAY
     Route: 048
     Dates: start: 20120720
  12. SINGULAIR [Concomitant]
     Dosage: 10 MG/DAY
     Route: 048
     Dates: start: 20120720
  13. LIVALO [Concomitant]
     Dosage: 1 MG/DAY
     Route: 048
     Dates: start: 20120720
  14. PREMINENT [Concomitant]
     Dosage: 1 TAB/DAY
     Route: 048
     Dates: start: 20120720
  15. NORVASC [Concomitant]
     Dosage: 5 MG/DAY
     Route: 048
     Dates: start: 20120720
  16. CELECOX [Concomitant]
     Dosage: 200 MG/DAY
     Route: 048
     Dates: start: 20120720

REACTIONS (2)
  - Pancytopenia [Recovered/Resolved]
  - Pyelonephritis acute [Not Recovered/Not Resolved]
